FAERS Safety Report 17460747 (Version 1)
Quarter: 2020Q1

REPORT INFORMATION
  Report Type: Spontaneous
  Country: US (occurrence: US)
  Receive Date: 20200213
  Receipt Date: 20200213
  Transmission Date: 20200409
  Serious: No
  Sender: FDA-Public Use
  Company Number: None

PATIENT
  Sex: Female

DRUGS (1)
  1. PROLIA [Suspect]
     Active Substance: DENOSUMAB
     Dosage: ?          OTHER FREQUENCY ONCE :EVERY 6 MONTHS;?
     Route: 058
     Dates: start: 20191206

REACTIONS (2)
  - Abdominal pain lower [None]
  - Dry mouth [None]
